FAERS Safety Report 5363521-3 (Version None)
Quarter: 2007Q2

REPORT INFORMATION
  Report Type: 
  Country: None (occurrence: None)
  Receive Date: 20070620
  Receipt Date: 20061012
  Transmission Date: 20071010
  Serious: Yes (Hospitalization)
  Sender: FDA-Public Use
  Company Number: US-BRISTOL-MYERS SQUIBB COMPANY-13539085

PATIENT
  Sex: Male
  Weight: 88 kg

DRUGS (8)
  1. MONOPRIL [Suspect]
     Indication: HYPERTENSION
     Dates: start: 20050101
  2. ATENOLOL [Concomitant]
  3. HYDROCHLOROTHIAZIDE [Concomitant]
  4. CLONIDINE [Concomitant]
  5. GLUCOVANCE [Concomitant]
  6. HUMULIN 70/30 [Concomitant]
  7. PROTONIX [Concomitant]
  8. LORTAB [Concomitant]

REACTIONS (3)
  - BLOOD POTASSIUM INCREASED [None]
  - CHEST PAIN [None]
  - NAUSEA [None]
